FAERS Safety Report 18125880 (Version 2)
Quarter: 2021Q1

REPORT INFORMATION
  Report Type: Spontaneous
  Country: US (occurrence: US)
  Receive Date: 20200807
  Receipt Date: 20210216
  Transmission Date: 20210419
  Serious: Yes (Hospitalization, Other)
  Sender: FDA-Public Use
  Company Number: US-ASTRAZENECA-2020SE97073

PATIENT
  Age: 21115 Day
  Sex: Male
  Weight: 84.4 kg

DRUGS (24)
  1. NEXIUM [Suspect]
     Active Substance: ESOMEPRAZOLE MAGNESIUM
     Indication: GASTROOESOPHAGEAL REFLUX DISEASE
     Route: 048
     Dates: start: 20150304, end: 20160123
  2. METOPROLOL. [Concomitant]
     Active Substance: METOPROLOL
     Dates: start: 20140417
  3. JANUVIA [Concomitant]
     Active Substance: SITAGLIPTIN PHOSPHATE
     Dates: start: 20140521
  4. MUPIROCIN. [Concomitant]
     Active Substance: MUPIROCIN
     Dates: start: 20131004
  5. CALCITRIOL. [Concomitant]
     Active Substance: CALCITRIOL
     Dates: start: 20151208
  6. SPIRONOLACTONE. [Concomitant]
     Active Substance: SPIRONOLACTONE
     Dates: start: 20101215, end: 20160404
  7. OMEPRAZOLE. [Suspect]
     Active Substance: OMEPRAZOLE
     Indication: GASTROOESOPHAGEAL REFLUX DISEASE
     Dosage: GENERIC
     Route: 065
     Dates: start: 20140423, end: 20160405
  8. LISINOPRIL. [Concomitant]
     Active Substance: LISINOPRIL
     Dates: start: 20091014, end: 20111224
  9. GLIPIZIDE. [Concomitant]
     Active Substance: GLIPIZIDE
     Dates: start: 20140504
  10. AMLODIPINE [Concomitant]
     Active Substance: AMLODIPINE BESYLATE
     Dates: start: 20140409
  11. NEXIUM [Suspect]
     Active Substance: ESOMEPRAZOLE MAGNESIUM
     Indication: GASTROOESOPHAGEAL REFLUX DISEASE
     Route: 048
     Dates: start: 2000, end: 2016
  12. NEXIUM [Suspect]
     Active Substance: ESOMEPRAZOLE MAGNESIUM
     Indication: GASTROOESOPHAGEAL REFLUX DISEASE
     Route: 048
     Dates: start: 20140528, end: 20140623
  13. OMEPRAZOLE. [Suspect]
     Active Substance: OMEPRAZOLE
     Indication: GASTROOESOPHAGEAL REFLUX DISEASE
     Dosage: GENERIC
     Route: 065
     Dates: start: 20160404, end: 20160504
  14. HYDRALAZINE [Concomitant]
     Active Substance: HYDRALAZINE HYDROCHLORIDE
     Dates: start: 20160520, end: 20160704
  15. DOXYCYCLINE. [Concomitant]
     Active Substance: DOXYCYCLINE
     Dates: start: 20150327
  16. NASONEX [Concomitant]
     Active Substance: MOMETASONE FUROATE
     Dates: start: 20150930
  17. FUROSEMIDE. [Concomitant]
     Active Substance: FUROSEMIDE
     Dates: start: 20101111, end: 20160910
  18. HYDROCODONE [Concomitant]
     Active Substance: HYDROCODONE
     Dates: start: 20140410
  19. AMOXICILLIN. [Concomitant]
     Active Substance: AMOXICILLIN
     Dates: start: 20140409
  20. NEXIUM [Suspect]
     Active Substance: ESOMEPRAZOLE MAGNESIUM
     Indication: GASTROOESOPHAGEAL REFLUX DISEASE
     Route: 048
     Dates: start: 20140528, end: 20160123
  21. NEXIUM [Suspect]
     Active Substance: ESOMEPRAZOLE MAGNESIUM
     Indication: GASTROOESOPHAGEAL REFLUX DISEASE
     Route: 048
     Dates: start: 20150304, end: 20150310
  22. PRAVASTATIN. [Concomitant]
     Active Substance: PRAVASTATIN
     Dates: start: 20101016, end: 20160704
  23. SUCRALFATE. [Concomitant]
     Active Substance: SUCRALFATE
     Dates: start: 20140525
  24. CEFUROXIME. [Concomitant]
     Active Substance: CEFUROXIME
     Dates: start: 20150709

REACTIONS (3)
  - End stage renal disease [Not Recovered/Not Resolved]
  - Chronic kidney disease [Not Recovered/Not Resolved]
  - Nephropathy [Unknown]

NARRATIVE: CASE EVENT DATE: 20140909
